FAERS Safety Report 25379815 (Version 3)
Quarter: 2025Q4

REPORT INFORMATION
  Report Type: Report from Study
  Country: CN (occurrence: CN)
  Receive Date: 20250530
  Receipt Date: 20251215
  Transmission Date: 20260118
  Serious: Yes (Hospitalization, Other)
  Sender: ROCHE
  Company Number: CN-ROCHE-3569356

PATIENT
  Age: 69 Year
  Sex: Female
  Weight: 50.9 kg

DRUGS (53)
  1. POLATUZUMAB VEDOTIN [Suspect]
     Active Substance: POLATUZUMAB VEDOTIN
     Indication: Diffuse large B-cell lymphoma
     Route: 041
     Dates: start: 20230806, end: 20230806
  2. POLATUZUMAB VEDOTIN [Suspect]
     Active Substance: POLATUZUMAB VEDOTIN
     Route: 041
     Dates: start: 20231102, end: 20231102
  3. POLATUZUMAB VEDOTIN [Suspect]
     Active Substance: POLATUZUMAB VEDOTIN
     Route: 041
     Dates: start: 20231126, end: 20231126
  4. POLATUZUMAB VEDOTIN [Suspect]
     Active Substance: POLATUZUMAB VEDOTIN
     Route: 041
     Dates: start: 20230906, end: 20230906
  5. POLATUZUMAB VEDOTIN [Suspect]
     Active Substance: POLATUZUMAB VEDOTIN
     Route: 041
     Dates: start: 20231001, end: 20231001
  6. TUCIDINOSTAT [Suspect]
     Active Substance: TUCIDINOSTAT
     Indication: Diffuse large B-cell lymphoma
     Route: 048
     Dates: start: 20230930, end: 20230930
  7. TUCIDINOSTAT [Suspect]
     Active Substance: TUCIDINOSTAT
     Route: 048
     Dates: start: 20231102, end: 20231112
  8. TUCIDINOSTAT [Suspect]
     Active Substance: TUCIDINOSTAT
     Route: 048
     Dates: start: 20231226, end: 20240107
  9. TUCIDINOSTAT [Suspect]
     Active Substance: TUCIDINOSTAT
     Route: 048
     Dates: start: 20230806, end: 20230816
  10. TUCIDINOSTAT [Suspect]
     Active Substance: TUCIDINOSTAT
     Route: 048
     Dates: start: 20231125, end: 20231205
  11. TUCIDINOSTAT [Suspect]
     Active Substance: TUCIDINOSTAT
     Route: 048
     Dates: start: 20230906, end: 20230916
  12. RITUXIMAB [Suspect]
     Active Substance: RITUXIMAB
     Indication: Diffuse large B-cell lymphoma
     Dosage: SUBSEQUENT DOSE: 05/SEP/2023
     Route: 041
     Dates: start: 20230805, end: 20230805
  13. RITUXIMAB [Suspect]
     Active Substance: RITUXIMAB
     Route: 041
     Dates: start: 20231001, end: 20231001
  14. RITUXIMAB [Suspect]
     Active Substance: RITUXIMAB
     Dosage: ONLY ONCE.
     Route: 041
     Dates: start: 20231102, end: 20231102
  15. RITUXIMAB [Suspect]
     Active Substance: RITUXIMAB
     Dosage: ONLY ONCE.
     Route: 041
     Dates: start: 20231125, end: 20231125
  16. RITUXIMAB [Suspect]
     Active Substance: RITUXIMAB
     Dosage: ONLY ONCE.
     Route: 041
  17. RITUXIMAB [Suspect]
     Active Substance: RITUXIMAB
     Dosage: ONLY ONCE.
     Route: 041
     Dates: start: 20230905, end: 20230905
  18. ETOPOSIDE [Suspect]
     Active Substance: ETOPOSIDE
     Indication: Diffuse large B-cell lymphoma
     Route: 041
     Dates: start: 20230806, end: 20230808
  19. ETOPOSIDE [Suspect]
     Active Substance: ETOPOSIDE
     Route: 041
     Dates: start: 20230906, end: 20230908
  20. ETOPOSIDE [Suspect]
     Active Substance: ETOPOSIDE
     Route: 041
     Dates: start: 20231002, end: 20231004
  21. ETOPOSIDE [Suspect]
     Active Substance: ETOPOSIDE
     Route: 041
     Dates: start: 20231103, end: 20231105
  22. ETOPOSIDE [Suspect]
     Active Substance: ETOPOSIDE
     Route: 041
     Dates: start: 20231126, end: 20231128
  23. IFOSFAMIDE [Suspect]
     Active Substance: IFOSFAMIDE
     Indication: Diffuse large B-cell lymphoma
     Route: 041
     Dates: start: 20230806, end: 20230808
  24. IFOSFAMIDE [Suspect]
     Active Substance: IFOSFAMIDE
     Route: 041
     Dates: start: 20230906, end: 20230908
  25. IFOSFAMIDE [Suspect]
     Active Substance: IFOSFAMIDE
     Route: 041
     Dates: start: 20231002, end: 20231004
  26. CYCLOPHOSPHAMIDE [Suspect]
     Active Substance: CYCLOPHOSPHAMIDE
     Indication: Diffuse large B-cell lymphoma
     Route: 041
     Dates: end: 20231105
  27. CYCLOPHOSPHAMIDE [Suspect]
     Active Substance: CYCLOPHOSPHAMIDE
     Route: 041
     Dates: start: 20231126, end: 20231128
  28. CARBOPLATIN [Suspect]
     Active Substance: CARBOPLATIN
     Indication: Diffuse large B-cell lymphoma
     Route: 041
     Dates: start: 20230807, end: 20230807
  29. CARBOPLATIN [Suspect]
     Active Substance: CARBOPLATIN
     Route: 041
     Dates: start: 20230907, end: 20230907
  30. CARBOPLATIN [Suspect]
     Active Substance: CARBOPLATIN
     Route: 041
     Dates: start: 20231003, end: 20231003
  31. CARBOPLATIN [Suspect]
     Active Substance: CARBOPLATIN
     Route: 041
     Dates: start: 20231127, end: 20231127
  32. OMEPRAZOLE [Concomitant]
     Active Substance: OMEPRAZOLE
  33. METHYLPREDNISOLONE SODIUM SUCCINATE [Concomitant]
     Active Substance: METHYLPREDNISOLONE SODIUM SUCCINATE
  34. ACETAMINOPHEN\ASPIRIN\CAFFEINE [Concomitant]
     Active Substance: ACETAMINOPHEN\ASPIRIN\CAFFEINE
  35. PROMETHAZINE HYDROCHLORIDE [Concomitant]
     Active Substance: PROMETHAZINE HYDROCHLORIDE
  36. IMIPENEM [Concomitant]
     Active Substance: IMIPENEM
  37. VANCOMYCIN [Concomitant]
     Active Substance: VANCOMYCIN
     Dates: start: 20231102, end: 20231102
  38. FLUCONAZOLE [Concomitant]
     Active Substance: FLUCONAZOLE
  39. SULFAMETHOXAZOLE [Concomitant]
     Active Substance: SULFAMETHOXAZOLE
  40. GRANULOCYTE COLONY-STIMULATING FACTOR NOS [Concomitant]
     Active Substance: GRANULOCYTE COLONY-STIMULATING FACTOR NOS
  41. PREDNISONE ACETATE [Concomitant]
     Active Substance: PREDNISONE ACETATE
  42. PALONOSETRON HYDROCHLORIDE [Concomitant]
     Active Substance: PALONOSETRON HYDROCHLORIDE
  43. CEFTAZIDIME [Concomitant]
     Active Substance: CEFTAZIDIME
  44. BERBERINE [Concomitant]
     Active Substance: BERBERINE
  45. LIDOCAINE HYDROCHLORIDE [Concomitant]
     Active Substance: LIDOCAINE HYDROCHLORIDE
  46. HEPARIN SODIUM [Concomitant]
     Active Substance: HEPARIN SODIUM
  47. UROKINASE [Concomitant]
     Active Substance: UROKINASE
  48. CEFACLOR [Concomitant]
     Active Substance: CEFACLOR
  49. RECOMBINANT HUMAN THROMBOPOIETIN [Concomitant]
  50. PEGYLATED RECOMBINANT HUMAN GRANULOCYTE COLONY STIMULATING FACTOR [Concomitant]
  51. MESNA [Concomitant]
     Active Substance: MESNA
  52. LEUCOGEN TABLET [Concomitant]
  53. POTASSIUM CHLORIDE [Concomitant]
     Active Substance: POTASSIUM CHLORIDE

REACTIONS (13)
  - White blood cell count decreased [Recovering/Resolving]
  - Neutrophil count decreased [Recovered/Resolved]
  - Lymphocyte count decreased [Recovered/Resolved]
  - Hypoalbuminaemia [Recovered/Resolved]
  - Platelet count decreased [Recovering/Resolving]
  - Hypocalcaemia [Recovered/Resolved]
  - Diarrhoea [Recovering/Resolving]
  - Febrile infection [Recovering/Resolving]
  - Gastrointestinal haemorrhage [Recovering/Resolving]
  - Hypokalaemia [Recovered/Resolved]
  - Myelosuppression [Not Recovered/Not Resolved]
  - Faecal occult blood positive [Not Recovered/Not Resolved]
  - Hepatitis B [Not Recovered/Not Resolved]

NARRATIVE: CASE EVENT DATE: 20230902
